FAERS Safety Report 8849992 (Version 3)
Quarter: 2017Q4

REPORT INFORMATION
  Report Type: Spontaneous
  Country: US (occurrence: US)
  Receive Date: 20121019
  Receipt Date: 20171218
  Transmission Date: 20180321
  Serious: Yes (Hospitalization, Disabling, Other)
  Sender: FDA-Public Use
  Company Number: US-009507513-1210USA004204

PATIENT
  Sex: Female

DRUGS (7)
  1. FOSAMAX [Suspect]
     Active Substance: ALENDRONATE SODIUM
     Indication: OSTEOPOROSIS
     Dosage: 70 MG, UNKNOWN
     Route: 048
     Dates: start: 200808, end: 200809
  2. ALENDRONATE SODIUM. [Suspect]
     Active Substance: ALENDRONATE SODIUM
     Indication: OSTEOPOROSIS
     Dosage: 70 MG, UNK
     Route: 048
     Dates: start: 200802, end: 200808
  3. FOSAMAX [Suspect]
     Active Substance: ALENDRONATE SODIUM
     Indication: OSTEOPOROSIS
     Dosage: UNK
     Route: 048
     Dates: start: 200501, end: 2005
  4. ALENDRONATE SODIUM. [Suspect]
     Active Substance: ALENDRONATE SODIUM
     Dosage: 70 MG, UNK
     Route: 048
     Dates: start: 200809, end: 200911
  5. FOSAMAX [Suspect]
     Active Substance: ALENDRONATE SODIUM
     Indication: OSTEOPOROSIS
     Dosage: 70 MG, UNKNOWN
     Route: 048
     Dates: start: 200506, end: 200801
  6. FOSAMAX [Suspect]
     Active Substance: ALENDRONATE SODIUM
     Dosage: 70 MG, QW
     Route: 048
     Dates: start: 200911, end: 201010
  7. ALENDRONATE SODIUM. [Suspect]
     Active Substance: ALENDRONATE SODIUM
     Indication: OSTEOPOROSIS
     Dosage: UNK
     Route: 048
     Dates: start: 200501, end: 2005

REACTIONS (20)
  - Femur fracture [Unknown]
  - Lumbar spinal stenosis [Unknown]
  - Rotator cuff repair [Unknown]
  - Arthritis [Unknown]
  - Intervertebral disc compression [Unknown]
  - Back pain [Unknown]
  - Hypertension [Unknown]
  - Fall [Unknown]
  - Bone disorder [Unknown]
  - Pain in extremity [Unknown]
  - Radiculopathy [Unknown]
  - Femur fracture [Unknown]
  - Arthropathy [Unknown]
  - Blood glucose increased [Unknown]
  - Blood cholesterol increased [Unknown]
  - Femur fracture [Unknown]
  - Fall [Unknown]
  - Tinea infection [Unknown]
  - Joint instability [Unknown]
  - Femur fracture [Unknown]

NARRATIVE: CASE EVENT DATE: 201009
